FAERS Safety Report 22898600 (Version 6)
Quarter: 2024Q1

REPORT INFORMATION
  Report Type: Spontaneous
  Country: DE (occurrence: DE)
  Receive Date: 20230904
  Receipt Date: 20240201
  Transmission Date: 20240410
  Serious: Yes (Death, Hospitalization, Other)
  Sender: FDA-Public Use
  Company Number: DE-009507513-2304DEU007939

PATIENT
  Age: 61 Year
  Sex: Male

DRUGS (5)
  1. PEMETREXED [Suspect]
     Active Substance: PEMETREXED
     Indication: Non-small cell lung cancer
     Dosage: 800 MILLIGRAM, 3 WEEK
     Route: 042
     Dates: start: 20230210
  2. PEMETREXED [Suspect]
     Active Substance: PEMETREXED
     Dosage: 1000 MILLIGRAM,3 WEEK
     Route: 042
     Dates: start: 20230210, end: 20230728
  3. CARBOPLATIN [Suspect]
     Active Substance: CARBOPLATIN
     Indication: Non-small cell lung cancer
     Dosage: 742 MILLIGRAM, 3 WEEK
     Route: 042
     Dates: start: 20230210, end: 20230324
  4. CARBOPLATIN [Suspect]
     Active Substance: CARBOPLATIN
     Dosage: 520 MILLIGRAM, 3 WEEK
     Route: 042
     Dates: start: 20230210, end: 20230324
  5. PEMBROLIZUMAB [Suspect]
     Active Substance: PEMBROLIZUMAB
     Indication: Non-small cell lung cancer
     Dosage: 200 MILLIGRAM, 3 WEEK
     Route: 042
     Dates: start: 20230303, end: 20230728

REACTIONS (22)
  - Death [Fatal]
  - Pneumonia [Fatal]
  - Fatigue [Not Recovered/Not Resolved]
  - Nephrostomy [Recovered/Resolved]
  - Renal failure [Unknown]
  - Vomiting [Not Recovered/Not Resolved]
  - Renal surgery [Recovered/Resolved]
  - Haematochezia [Not Recovered/Not Resolved]
  - Nephritis [Recovering/Resolving]
  - Abdominal pain upper [Not Recovered/Not Resolved]
  - Cough [Recovered/Resolved]
  - Decreased appetite [Not Recovered/Not Resolved]
  - Diarrhoea [Not Recovered/Not Resolved]
  - Dizziness [Not Recovered/Not Resolved]
  - Dyspnoea [Not Recovered/Not Resolved]
  - Haemoglobin decreased [Recovering/Resolving]
  - Leukocytosis [Recovered/Resolved]
  - Nausea [Not Recovered/Not Resolved]
  - Pruritus [Not Recovered/Not Resolved]
  - Rash [Not Recovered/Not Resolved]
  - Renal function test abnormal [Recovering/Resolving]
  - Vision blurred [Recovered/Resolved]

NARRATIVE: CASE EVENT DATE: 20230214
